FAERS Safety Report 7137866-0 (Version None)
Quarter: 2010Q4

REPORT INFORMATION
  Report Type: 
  Country: None (occurrence: None)
  Receive Date: 20101103
  Receipt Date: 20100712
  Transmission Date: 20110411
  Serious: Yes (Other)
  Sender: FDA-Public Use
  Company Number: US-WYE-H16484010

PATIENT
  Age: 52 Year
  Sex: Male
  Weight: 99.88 kg

DRUGS (2)
  1. EFFEXOR XR [Suspect]
     Indication: AGITATION
     Dosage: 37.5 MG 1X PER 1 DAY
     Dates: start: 20000101
  2. EFFEXOR XR [Suspect]
     Indication: DEPRESSION
     Dosage: 37.5 MG 1X PER 1 DAY
     Dates: start: 20000101

REACTIONS (1)
  - RESTLESS LEGS SYNDROME [None]
